FAERS Safety Report 9515646 (Version 2)
Quarter: 2013Q3

REPORT INFORMATION
  Report Type: Spontaneous
  Country: US (occurrence: US)
  Receive Date: 20130911
  Receipt Date: 20130918
  Transmission Date: 20140515
  Serious: Yes (Hospitalization)
  Sender: FDA-Public Use
  Company Number: US-BAYER-2013-108291

PATIENT
  Age: 49 Year
  Sex: Female
  Weight: 101.13 kg

DRUGS (10)
  1. OCELLA [Suspect]
     Dosage: UNK
     Dates: start: 201107, end: 201110
  2. FLUOXETINE [Concomitant]
     Dosage: 10 MG, UNK
     Dates: start: 20110902
  3. ZOLPIDEM TARTRATE [Concomitant]
     Dosage: 10 MG, UNK
     Dates: start: 20110902
  4. PROAIR HFA [Concomitant]
     Dosage: 90 MCG
     Dates: start: 20110919
  5. DOXYCYCLINE HYCLATE [DOXYCYCLINE HYCLATE] [Concomitant]
     Dosage: 100 MG, UNK
     Dates: start: 20110930
  6. DOXYCYCLINE MONOHYDRATE [DOXYCYCLINE MONOHYDRATE] [Concomitant]
  7. SYMBICORT [Concomitant]
  8. BENADRYL [Concomitant]
  9. PROZAC [Concomitant]
     Indication: ANXIETY
  10. PROZAC [Concomitant]
     Indication: DEPRESSION

REACTIONS (8)
  - Pulmonary embolism [Recovered/Resolved]
  - Deep vein thrombosis [None]
  - Anxiety [None]
  - General physical health deterioration [None]
  - Emotional distress [None]
  - Pain [None]
  - Injury [None]
  - Pain [None]
